FAERS Safety Report 23473318 (Version 5)
Quarter: 2025Q1

REPORT INFORMATION
  Report Type: Spontaneous
  Country: IT (occurrence: IT)
  Receive Date: 20240203
  Receipt Date: 20250322
  Transmission Date: 20250409
  Serious: Yes (Life-Threatening, Other)
  Sender: CELLTRION
  Company Number: IT-CELLTRION INC.-2024IT002309

PATIENT

DRUGS (36)
  1. ADALIMUMAB [Suspect]
     Active Substance: ADALIMUMAB
     Indication: Juvenile idiopathic arthritis
     Route: 065
  2. ADALIMUMAB [Suspect]
     Active Substance: ADALIMUMAB
     Indication: Haemophagocytic lymphohistiocytosis
     Route: 058
     Dates: start: 200608
  3. ADALIMUMAB [Suspect]
     Active Substance: ADALIMUMAB
     Route: 058
     Dates: start: 201308, end: 201310
  4. ETANERCEPT [Suspect]
     Active Substance: ETANERCEPT
     Indication: Juvenile idiopathic arthritis
     Route: 065
  5. ETANERCEPT [Suspect]
     Active Substance: ETANERCEPT
     Indication: Haemophagocytic lymphohistiocytosis
     Route: 058
     Dates: start: 200507, end: 200512
  6. ETANERCEPT [Suspect]
     Active Substance: ETANERCEPT
     Route: 058
     Dates: start: 200901, end: 201308
  7. ETANERCEPT [Suspect]
     Active Substance: ETANERCEPT
     Route: 058
     Dates: start: 201310, end: 201803
  8. BARICITINIB [Suspect]
     Active Substance: BARICITINIB
     Indication: Still^s disease
     Route: 048
     Dates: start: 202007, end: 202205
  9. BARICITINIB [Suspect]
     Active Substance: BARICITINIB
     Indication: Haemophagocytic lymphohistiocytosis
  10. PREDNISONE [Suspect]
     Active Substance: PREDNISONE
     Indication: Still^s disease
     Route: 048
  11. PREDNISONE [Suspect]
     Active Substance: PREDNISONE
     Indication: Haemophagocytic lymphohistiocytosis
     Route: 048
  12. PREDNISONE [Suspect]
     Active Substance: PREDNISONE
     Route: 048
  13. METHOTREXATE SODIUM [Suspect]
     Active Substance: METHOTREXATE SODIUM
     Indication: Haemophagocytic lymphohistiocytosis
     Dosage: 15 MG/M2, WEEKLY
     Route: 058
     Dates: start: 200408, end: 200603
  14. METHOTREXATE SODIUM [Suspect]
     Active Substance: METHOTREXATE SODIUM
     Dosage: 15 MG/M2, WEEKLY
     Route: 058
     Dates: start: 201007
  15. METHOTREXATE SODIUM [Suspect]
     Active Substance: METHOTREXATE SODIUM
     Indication: Still^s disease
     Dosage: 15 MILLIGRAM, QWK
     Route: 058
  16. TOCILIZUMAB [Suspect]
     Active Substance: TOCILIZUMAB
     Indication: Still^s disease
     Route: 065
  17. TOCILIZUMAB [Suspect]
     Active Substance: TOCILIZUMAB
     Indication: Haemophagocytic lymphohistiocytosis
     Route: 065
     Dates: start: 200701, end: 200702
  18. ECULIZUMAB [Suspect]
     Active Substance: ECULIZUMAB
     Indication: Thrombotic microangiopathy
     Route: 065
  19. THALIDOMIDE [Suspect]
     Active Substance: THALIDOMIDE
     Indication: Still^s disease
     Route: 065
  20. THALIDOMIDE [Suspect]
     Active Substance: THALIDOMIDE
     Indication: Haemophagocytic lymphohistiocytosis
     Route: 048
     Dates: start: 200408, end: 200507
  21. THALIDOMIDE [Suspect]
     Active Substance: THALIDOMIDE
     Route: 048
     Dates: start: 200508, end: 200512
  22. THALIDOMIDE [Suspect]
     Active Substance: THALIDOMIDE
     Route: 048
     Dates: start: 200606, end: 200608
  23. THALIDOMIDE [Suspect]
     Active Substance: THALIDOMIDE
     Route: 048
     Dates: start: 200807, end: 200901
  24. ANAKINRA [Suspect]
     Active Substance: ANAKINRA
     Indication: Still^s disease
     Route: 065
  25. ANAKINRA [Suspect]
     Active Substance: ANAKINRA
     Indication: Haemophagocytic lymphohistiocytosis
     Route: 042
     Dates: start: 200507
  26. ANAKINRA [Suspect]
     Active Substance: ANAKINRA
     Route: 042
     Dates: start: 200512
  27. ANAKINRA [Suspect]
     Active Substance: ANAKINRA
     Route: 042
     Dates: start: 200804, end: 200806
  28. ANAKINRA [Suspect]
     Active Substance: ANAKINRA
     Route: 042
     Dates: start: 201310
  29. ABATACEPT [Suspect]
     Active Substance: ABATACEPT
     Indication: Still^s disease
     Route: 065
  30. ABATACEPT [Suspect]
     Active Substance: ABATACEPT
     Indication: Haemophagocytic lymphohistiocytosis
     Route: 042
     Dates: start: 200807, end: 200812
  31. CYCLOSPORINE [Suspect]
     Active Substance: CYCLOSPORINE
     Indication: Still^s disease
     Route: 065
  32. CYCLOSPORINE [Suspect]
     Active Substance: CYCLOSPORINE
     Indication: Haemophagocytic lymphohistiocytosis
     Route: 048
     Dates: start: 200512, end: 200603
  33. CYCLOSPORINE [Suspect]
     Active Substance: CYCLOSPORINE
     Route: 048
     Dates: start: 200606, end: 201011
  34. CANAKINUMAB [Suspect]
     Active Substance: CANAKINUMAB
     Indication: Haemophagocytic lymphohistiocytosis
     Route: 065
     Dates: start: 201803, end: 202007
  35. AZATHIOPRINE [Suspect]
     Active Substance: AZATHIOPRINE
     Indication: Haemophagocytic lymphohistiocytosis
     Route: 048
     Dates: start: 200603, end: 200606
  36. METHOTREXATE SODIUM [Concomitant]
     Active Substance: METHOTREXATE SODIUM
     Indication: Still^s disease
     Route: 065

REACTIONS (8)
  - Haemophagocytic lymphohistiocytosis [Recovered/Resolved]
  - Still^s disease [Unknown]
  - Thrombotic microangiopathy [Recovered/Resolved]
  - COVID-19 [Unknown]
  - Drug ineffective for unapproved indication [Unknown]
  - Steroid dependence [Unknown]
  - Off label use [Unknown]
  - Off label use [Unknown]
